FAERS Safety Report 7179436-4 (Version None)
Quarter: 2010Q4

REPORT INFORMATION
  Report Type: 
  Country: None (occurrence: None)
  Receive Date: 20101217
  Receipt Date: 20101217
  Transmission Date: 20110411
  Serious: Yes (Hospitalization)
  Sender: FDA-Public Use
  Company Number: None

PATIENT
  Sex: Male
  Weight: 80.3 kg

DRUGS (6)
  1. TAXOTERE [Suspect]
     Dosage: 10 MG
  2. FENTANYL-100 [Concomitant]
  3. LACTULOSE [Concomitant]
  4. OXYCODONE [Concomitant]
  5. PREDNISONE [Concomitant]
  6. PREVACID [Concomitant]

REACTIONS (3)
  - HYPOPHAGIA [None]
  - MALAISE [None]
  - NAUSEA [None]
